FAERS Safety Report 9052581 (Version 1)
Quarter: 2013Q1

REPORT INFORMATION
  Report Type: Spontaneous
  Country: US (occurrence: US)
  Receive Date: 20130207
  Receipt Date: 20130207
  Transmission Date: 20140127
  Serious: No
  Sender: FDA-Public Use
  Company Number: US-PFIZER INC-2013038542

PATIENT
  Age: 61 Year
  Sex: Female

DRUGS (3)
  1. MOTRIN IB [Suspect]
     Dosage: ONCE
     Route: 048
  2. LISINOPRIL [Suspect]
     Dosage: UNK
     Route: 065
  3. NEURONTIN [Concomitant]
     Dosage: UNK
     Route: 065

REACTIONS (4)
  - Therapeutic response increased [Unknown]
  - Abdominal discomfort [Unknown]
  - Dizziness [Unknown]
  - Product quality issue [Unknown]
